FAERS Safety Report 10391878 (Version 4)
Quarter: 2014Q3

REPORT INFORMATION
  Report Type: Spontaneous
  Country: JP (occurrence: JP)
  Receive Date: 20140819
  Receipt Date: 20140925
  Transmission Date: 20150326
  Serious: Yes (Other)
  Sender: FDA-Public Use
  Company Number: PHHY2014JP101447

PATIENT
  Sex: Female

DRUGS (5)
  1. ZOMETA [Suspect]
     Active Substance: ZOLEDRONIC ACID
     Indication: METASTASES TO BONE
     Dosage: 4 MG, DAILY
     Route: 041
  2. AVASTIN [Suspect]
     Active Substance: BEVACIZUMAB
     Dosage: 10 MG/M2, UNK
  3. PACLITAXEL. [Suspect]
     Active Substance: PACLITAXEL
     Indication: BREAST CANCER STAGE IV
     Dosage: 80 MG/M2, UNK
  4. ZOMETA [Suspect]
     Active Substance: ZOLEDRONIC ACID
     Indication: METASTASES TO BREAST
  5. FEMARA [Suspect]
     Active Substance: LETROZOLE
     Indication: BREAST CANCER STAGE IV
     Dosage: 2.5 MG DIALY
     Route: 048

REACTIONS (11)
  - Haemorrhage [Recovered/Resolved]
  - Haematotoxicity [Recovering/Resolving]
  - Bone marrow failure [Recovering/Resolving]
  - Renal impairment [Recovering/Resolving]
  - Proteinuria [Recovering/Resolving]
  - Haematuria [Recovering/Resolving]
  - Nausea [Recovering/Resolving]
  - Metastases to bone [Unknown]
  - Neoplasm [Unknown]
  - Malignant neoplasm progression [Unknown]
  - Anaemia [Recovering/Resolving]
